FAERS Safety Report 11817223 (Version 2)
Quarter: 2017Q2

REPORT INFORMATION
  Report Type: Spontaneous
  Country: US (occurrence: US)
  Receive Date: 20151210
  Receipt Date: 20170414
  Transmission Date: 20170829
  Serious: No
  Sender: FDA-Public Use
  Company Number: US-JNJFOC-20151114369

PATIENT
  Sex: Male

DRUGS (4)
  1. RISPERDAL [Suspect]
     Active Substance: RISPERIDONE
     Indication: BIPOLAR DISORDER
     Dosage: THE PATIENT WAS TREATED WITH VARYING DOSE OF 0.5 MG TO 2.0 MG.
     Route: 048
     Dates: start: 2012, end: 2014
  2. RISPERDAL [Suspect]
     Active Substance: RISPERIDONE
     Indication: ATTENTION DEFICIT/HYPERACTIVITY DISORDER
     Dosage: THE PATIENT WAS TREATED WITH VARYING DOSE OF 0.5 MG TO 2.0 MG.
     Route: 048
     Dates: start: 2012, end: 2014
  3. RISPERDAL [Suspect]
     Active Substance: RISPERIDONE
     Indication: PSYCHOTIC DISORDER
     Dosage: THE PATIENT WAS TREATED WITH VARYING DOSE OF 0.5 MG TO 2.0 MG.
     Route: 048
     Dates: start: 2012, end: 2014
  4. RISPERDAL [Suspect]
     Active Substance: RISPERIDONE
     Indication: INTERMITTENT EXPLOSIVE DISORDER
     Dosage: THE PATIENT WAS TREATED WITH VARYING DOSE OF 0.5 MG TO 2.0 MG.
     Route: 048
     Dates: start: 2012, end: 2014

REACTIONS (3)
  - Abnormal weight gain [Unknown]
  - Gynaecomastia [Unknown]
  - Galactorrhoea [Unknown]

NARRATIVE: CASE EVENT DATE: 2013
